FAERS Safety Report 4422300-1 (Version None)
Quarter: 2004Q3

REPORT INFORMATION
  Report Type: 
  Country: None (occurrence: None)
  Receive Date: 20040810
  Receipt Date: 20040804
  Transmission Date: 20050211
  Serious: Yes (Hospitalization)
  Sender: FDA-Public Use
  Company Number: PHRM2004FR02504

PATIENT
  Age: 17 Year
  Sex: Female
  Weight: 42 kg

DRUGS (2)
  1. VOLTAREN [Suspect]
     Dosage: 8 DF, QD
     Route: 048
     Dates: start: 20030410, end: 20030411
  2. MYOLASTAN [Concomitant]
     Dosage: 7 DF, QD
     Route: 048
     Dates: start: 20030410, end: 20030411

REACTIONS (8)
  - ANOREXIA [None]
  - ASTHENIA [None]
  - BLOOD CREATININE INCREASED [None]
  - CREATININE RENAL CLEARANCE DECREASED [None]
  - NAUSEA [None]
  - RENAL FAILURE ACUTE [None]
  - SUICIDE ATTEMPT [None]
  - VOMITING [None]
